FAERS Safety Report 22013634 (Version 1)
Quarter: 2023Q1

REPORT INFORMATION
  Report Type: Spontaneous
  Country: US (occurrence: None)
  Receive Date: 20230220
  Receipt Date: 20230220
  Transmission Date: 20230418
  Serious: No
  Sender: FDA-Public Use
  Company Number: US-Encube-000278

PATIENT
  Sex: Female

DRUGS (1)
  1. CLOBETASOL PROPIONATE [Suspect]
     Active Substance: CLOBETASOL PROPIONATE
     Indication: Eczema
     Dates: start: 20230202, end: 20230202

REACTIONS (2)
  - Limb injury [Not Recovered/Not Resolved]
  - Product container issue [Unknown]

NARRATIVE: CASE EVENT DATE: 20230201
